FAERS Safety Report 11265113 (Version 1)
Quarter: 2015Q3

REPORT INFORMATION
  Report Type: Spontaneous
  Country: None (occurrence: None)
  Receive Date: 20150710
  Receipt Date: 20150710
  Transmission Date: 20151125
  Serious: No
  Sender: FDA-Public Use
  Company Number: None

PATIENT
  Age: 39 Year
  Sex: Female
  Weight: 63.5 kg

DRUGS (2)
  1. METHYLISOTHIAZOLINONE [Suspect]
     Active Substance: METHYLISOTHIAZOLINONE
  2. NEUTROGENA BABY SUN LOTION [Suspect]
     Active Substance: TITANIUM DIOXIDE\ZINC OXIDE

REACTIONS (5)
  - Pruritus [None]
  - Rash [None]
  - Skin disorder [None]
  - Drug hypersensitivity [None]
  - Blister [None]

NARRATIVE: CASE EVENT DATE: 20150622
